FAERS Safety Report 11196467 (Version 3)
Quarter: 2016Q1

REPORT INFORMATION
  Report Type: Spontaneous
  Country: US (occurrence: US)
  Receive Date: 20150617
  Receipt Date: 20160325
  Transmission Date: 20160525
  Serious: Yes (Hospitalization)
  Sender: FDA-Public Use
  Company Number: US-BAYER-2015-351436

PATIENT
  Age: 27 Year
  Sex: Female
  Weight: 70.3 kg

DRUGS (10)
  1. ALBUTEROL. [Concomitant]
     Active Substance: ALBUTEROL
     Dosage: 90 ?G, UNK
     Route: 045
  2. MIRENA [Suspect]
     Active Substance: LEVONORGESTREL
     Indication: CONTRACEPTION
     Dosage: 20 MCG/24HR, CONT
     Route: 015
     Dates: start: 20111024, end: 20130626
  3. ZOVIRAX [Concomitant]
     Active Substance: ACYCLOVIR
     Dosage: 5 %, UNK
  4. PROVENTIL HFA [Concomitant]
     Active Substance: ALBUTEROL SULFATE
     Dosage: 90 ?G, UNK
     Route: 045
  5. ESTRACE [Concomitant]
     Active Substance: ESTRADIOL
     Dosage: 0.5 MG, UNK
  6. PAXIL [Concomitant]
     Active Substance: PAROXETINE HYDROCHLORIDE
     Dosage: 20 MG, UNK
  7. FLONASE [Concomitant]
     Active Substance: FLUTICASONE PROPIONATE
     Dosage: 50 ?G, UNK
     Route: 045
  8. VENTOLIN HFA [Concomitant]
     Active Substance: ALBUTEROL SULFATE
     Dosage: 90 ?G, UNK
     Route: 045
  9. ADDERALL XR [Concomitant]
     Active Substance: AMPHETAMINE ASPARTATE\AMPHETAMINE SULFATE\DEXTROAMPHETAMINE SACCHARATE\DEXTROAMPHETAMINE SULFATE
     Dosage: 20 MG/HR, UNK
  10. MOTRIN [Concomitant]
     Active Substance: IBUPROFEN
     Indication: PAIN

REACTIONS (10)
  - Embedded device [Not Recovered/Not Resolved]
  - Depressed mood [None]
  - Ectopic pregnancy with contraceptive device [None]
  - Abdominal pain [Not Recovered/Not Resolved]
  - Emotional distress [None]
  - Injury [Not Recovered/Not Resolved]
  - Anger [None]
  - Depression [None]
  - Anxiety [None]
  - Drug ineffective [None]

NARRATIVE: CASE EVENT DATE: 201306
